FAERS Safety Report 17729243 (Version 2)
Quarter: 2020Q2

REPORT INFORMATION
  Report Type: Report from Study
  Country: US (occurrence: US)
  Receive Date: 20200430
  Receipt Date: 20200626
  Transmission Date: 20200714
  Serious: Yes (Death, Hospitalization, Other)
  Sender: FDA-Public Use
  Company Number: US-PFIZER INC-2020174114

PATIENT
  Age: 82 Year
  Sex: Male

DRUGS (3)
  1. AMIDARONE [Suspect]
     Active Substance: AMIODARONE
     Dosage: UNK
  2. TIKOSYN [Suspect]
     Active Substance: DOFETILIDE
     Dosage: UNK
  3. OFEV [Suspect]
     Active Substance: NINTEDANIB
     Indication: IDIOPATHIC PULMONARY FIBROSIS
     Dosage: 200 MG, DAILY ((100 MILLIGRAM, 2 EVERY 1 DAY))
     Route: 048
     Dates: start: 20180509, end: 20191217

REACTIONS (5)
  - Hypoxia [Unknown]
  - Subarachnoid haemorrhage [Not Recovered/Not Resolved]
  - Cardiogenic shock [Fatal]
  - Atrial fibrillation [Recovered/Resolved]
  - Pyrexia [Unknown]

NARRATIVE: CASE EVENT DATE: 20191205
